FAERS Safety Report 22100325 (Version 3)
Quarter: 2023Q4

REPORT INFORMATION
  Report Type: Spontaneous
  Country: US (occurrence: US)
  Receive Date: 20230315
  Receipt Date: 20231205
  Transmission Date: 20240110
  Serious: Yes (Other)
  Sender: FDA-Public Use
  Company Number: US-CELLTRION INC.-2023US005204

PATIENT

DRUGS (4)
  1. TRUXIMA [Suspect]
     Active Substance: RITUXIMAB-ABBS
     Indication: Rheumatoid arthritis
     Dosage: UNK
     Dates: start: 20230202
  2. TRUXIMA [Suspect]
     Active Substance: RITUXIMAB-ABBS
     Dosage: UNK
     Dates: start: 20230217
  3. METHOTREXATE [Concomitant]
     Active Substance: METHOTREXATE
  4. TYLENOL [Concomitant]
     Active Substance: ACETAMINOPHEN
     Indication: Pain

REACTIONS (21)
  - Hypertension [Unknown]
  - Cheilitis [Recovered/Resolved]
  - Condition aggravated [Not Recovered/Not Resolved]
  - C-reactive protein increased [Unknown]
  - Inflammatory marker increased [Unknown]
  - Ill-defined disorder [Unknown]
  - Pallor [Unknown]
  - White blood cell count decreased [Unknown]
  - Arthralgia [Unknown]
  - Asthenia [Not Recovered/Not Resolved]
  - Back pain [Unknown]
  - Fatigue [Not Recovered/Not Resolved]
  - Cough [Unknown]
  - Dyspnoea [Unknown]
  - Headache [Not Recovered/Not Resolved]
  - Illness [Not Recovered/Not Resolved]
  - Nasal congestion [Unknown]
  - Nausea [Recovered/Resolved]
  - Rhinorrhoea [Unknown]
  - Wheezing [Unknown]
  - Therapy interrupted [Unknown]
